FAERS Safety Report 19332156 (Version 1)
Quarter: 2021Q2

REPORT INFORMATION
  Report Type: Spontaneous
  Country: FR (occurrence: FR)
  Receive Date: 20210529
  Receipt Date: 20210529
  Transmission Date: 20210717
  Serious: Yes (Hospitalization, Other)
  Sender: FDA-Public Use
  Company Number: FR-AUROBINDO-AUR-APL-2021-022081

PATIENT
  Age: 24 Year
  Sex: Female

DRUGS (2)
  1. IBUPROFEN. [Suspect]
     Active Substance: IBUPROFEN
     Indication: CHEST PAIN
     Dosage: 2.4 GRAM, ONCE A DAY
     Route: 048
  2. IBUPROFEN. [Suspect]
     Active Substance: IBUPROFEN
     Dosage: UNK
     Route: 065

REACTIONS (12)
  - Acute respiratory failure [Recovered/Resolved]
  - Pulmonary cavitation [Recovered/Resolved]
  - Bronchiectasis [Recovered/Resolved]
  - Respiratory distress [Recovered/Resolved]
  - Haemoptysis [Recovered/Resolved]
  - Rales [Recovered/Resolved]
  - Neutrophil count increased [Recovered/Resolved]
  - C-reactive protein increased [Recovered/Resolved]
  - Bacterial infection [Recovered/Resolved]
  - Lung infiltration [Recovered/Resolved]
  - White blood cell count increased [Recovered/Resolved]
  - Drug ineffective [Not Recovered/Not Resolved]
